FAERS Safety Report 4486327-6 (Version None)
Quarter: 2004Q4

REPORT INFORMATION
  Report Type: 
  Country: None (occurrence: None)
  Receive Date: 20041027
  Receipt Date: 20041015
  Transmission Date: 20050328
  Serious: Yes (Hospitalization)
  Sender: FDA-Public Use
  Company Number: JP-JNJFOC-20041004719

PATIENT
  Sex: Female
  Weight: 45 kg

DRUGS (8)
  1. REMICADE [Suspect]
     Route: 042
  2. REMICADE [Suspect]
     Route: 042
  3. REMICADE [Suspect]
     Indication: RHEUMATOID ARTHRITIS
     Route: 042
  4. RHEUMATREX [Concomitant]
     Route: 049
  5. RHEUMATREX [Concomitant]
     Indication: RHEUMATOID ARTHRITIS
     Route: 049
  6. PREDNISOLONE [Concomitant]
     Indication: RHEUMATOID ARTHRITIS
     Route: 049
  7. CLARITH [Concomitant]
     Route: 049
  8. GASTER [Concomitant]
     Route: 049

REACTIONS (6)
  - C-REACTIVE PROTEIN INCREASED [None]
  - DYSPNOEA [None]
  - INFUSION RELATED REACTION [None]
  - PAIN [None]
  - RASH MACULAR [None]
  - SWELLING [None]
